FAERS Safety Report 18117051 (Version 1)
Quarter: 2020Q3

REPORT INFORMATION
  Report Type: Spontaneous
  Country: US (occurrence: US)
  Receive Date: 20200805
  Receipt Date: 20200805
  Transmission Date: 20201103
  Serious: No
  Sender: FDA-Public Use
  Company Number: US-009507513-2007USA012190

PATIENT
  Age: 14 Year
  Sex: Male

DRUGS (8)
  1. SULFAMETHOXAZOLE (+) TRIMETHOPRIM [Concomitant]
     Active Substance: SULFAMETHOXAZOLE\TRIMETHOPRIM
     Indication: PROPHYLAXIS
  2. INTRON A [Suspect]
     Active Substance: INTERFERON ALFA-2B
     Indication: HERPES SIMPLEX
  3. CIDOFOVIR. [Concomitant]
     Active Substance: CIDOFOVIR
     Dosage: UNK
     Route: 048
  4. INTRON A [Suspect]
     Active Substance: INTERFERON ALFA-2B
     Indication: GENE MUTATION
  5. ACYCLOVIR. [Concomitant]
     Active Substance: ACYCLOVIR
     Dosage: UNK
     Route: 048
  6. FOSCARNET SODIUM. [Concomitant]
     Active Substance: FOSCARNET SODIUM
     Route: 042
  7. CIDOFOVIR. [Concomitant]
     Active Substance: CIDOFOVIR
     Route: 042
  8. ACYCLOVIR. [Concomitant]
     Active Substance: ACYCLOVIR
     Indication: PROPHYLAXIS
     Route: 042

REACTIONS (2)
  - Product use in unapproved indication [Unknown]
  - Product use issue [Unknown]
